FAERS Safety Report 22822853 (Version 4)
Quarter: 2023Q4

REPORT INFORMATION
  Report Type: Report from Study
  Country: US (occurrence: US)
  Receive Date: 20230815
  Receipt Date: 20231208
  Transmission Date: 20240109
  Serious: Yes (Other)
  Sender: FDA-Public Use
  Company Number: US-ABBVIE-5366167

PATIENT

DRUGS (2)
  1. BOTOX [Suspect]
     Active Substance: ONABOTULINUMTOXINA
     Indication: Product used for unknown indication
     Dosage: TIME INTERVAL: AS NECESSARY
     Route: 065
  2. NURTEC ODT [Suspect]
     Active Substance: RIMEGEPANT SULFATE
     Indication: Product used for unknown indication
     Route: 065

REACTIONS (12)
  - Cerebrovascular accident [Unknown]
  - Cerebral haemorrhage [Unknown]
  - Thrombosis [Unknown]
  - Antiphospholipid syndrome [Unknown]
  - Blindness unilateral [Unknown]
  - Seizure [Unknown]
  - Transient ischaemic attack [Unknown]
  - Cerebral infarction [Unknown]
  - Drug hypersensitivity [Unknown]
  - Drug ineffective [Unknown]
  - Adverse drug reaction [Unknown]
  - Hemiplegic migraine [Unknown]
